FAERS Safety Report 4784928-9 (Version None)
Quarter: 2005Q3

REPORT INFORMATION
  Report Type: 
  Country: None (occurrence: None)
  Receive Date: 20050929
  Receipt Date: 20050929
  Transmission Date: 20060218
  Serious: Yes (Other)
  Sender: FDA-Public Use
  Company Number: None

PATIENT
  Age: 17 Year
  Sex: Female

DRUGS (1)
  1. TUBERCULIN PPD (MANTOUX ) TUBERSOL (TU) 5 US UNITS PER TEST (AVENTIS P [Suspect]
     Indication: TUBERCULIN TEST
     Dosage: .1 CC INTRADERMAL
     Route: 023

REACTIONS (3)
  - HYPOAESTHESIA [None]
  - PAIN IN EXTREMITY [None]
  - SWOLLEN TONGUE [None]
